FAERS Safety Report 8632117 (Version 2)
Quarter: 2012Q4

REPORT INFORMATION
  Report Type: 
  Country: FR (occurrence: FR)
  Receive Date: 20120625
  Receipt Date: 20121108
  Transmission Date: 20130627
  Serious: Yes (Death, Life-Threatening)
  Sender: FDA-Public Use
  Company Number: FR-JNJFOC-20120609704

PATIENT
  Age: 77 Year
  Sex: Male

DRUGS (8)
  1. IXPRIM [Suspect]
     Indication: PAIN
     Route: 048
     Dates: start: 201111
  2. AMAREL [Suspect]
     Indication: TYPE 2 DIABETES MELLITUS
     Route: 048
  3. SITAGLIPTIN PHOSPHATE [Suspect]
     Indication: TYPE 2 DIABETES MELLITUS
     Route: 048
     Dates: start: 2010
  4. OMEPRAZOLE [Suspect]
     Indication: GASTROOESOPHAGEAL REFLUX DISEASE
     Route: 048
  5. LEXOMIL [Suspect]
     Indication: ANXIETY
     Route: 048
  6. COAPROVEL [Suspect]
     Indication: HYPERTENSION
     Route: 048
  7. GLUCOPHAGE [Suspect]
     Indication: TYPE 2 DIABETES MELLITUS
     Route: 048
  8. TAHOR [Suspect]
     Indication: DYSLIPIDAEMIA
     Route: 048

REACTIONS (1)
  - Pancreatic carcinoma [Fatal]
